FAERS Safety Report 16514660 (Version 2)
Quarter: 2019Q3

REPORT INFORMATION
  Report Type: Spontaneous
  Country: US (occurrence: US)
  Receive Date: 20190702
  Receipt Date: 20190702
  Transmission Date: 20191004
  Serious: No
  Sender: FDA-Public Use
  Company Number: US-GALDERMA-US19005780

PATIENT
  Age: 16 Year
  Sex: Female

DRUGS (4)
  1. PROACTIV?MD DEEP CLEANSING FACE?WASH [Concomitant]
     Indication: ACNE
     Route: 061
  2. PROACTIV?MD BALANCING TONER [Concomitant]
     Indication: ACNE
     Route: 061
  3. PROACTIV MD ADAPALENE ACNE TREATMENT [Suspect]
     Active Substance: ADAPALENE
     Indication: ACNE
     Dosage: 0.1%
     Route: 061
  4. PROACTIV MD DAILY OIL CONTROL SPF 30 [Suspect]
     Active Substance: AVOBENZONE\OCTISALATE\OCTOCRYLENE
     Indication: ACNE
     Route: 061

REACTIONS (5)
  - Skin irritation [Unknown]
  - Skin exfoliation [Unknown]
  - Erythema [Unknown]
  - Pain of skin [Unknown]
  - Acne [Unknown]
